FAERS Safety Report 18461222 (Version 1)
Quarter: 2020Q4

REPORT INFORMATION
  Report Type: Report from Study
  Country: None (occurrence: US)
  Receive Date: 20201104
  Receipt Date: 20201104
  Transmission Date: 20210114
  Serious: Yes (Disabling)
  Sender: FDA-Public Use
  Company Number: US-INSMED, INC.-US-INS-20-01965

PATIENT
  Age: 86 Year
  Sex: Female

DRUGS (2)
  1. ARIKAYCE [Suspect]
     Active Substance: AMIKACIN
     Indication: MYCOBACTERIUM AVIUM COMPLEX INFECTION
     Route: 055
     Dates: start: 20201014, end: 20201018
  2. ARIKAYCE [Suspect]
     Active Substance: AMIKACIN
     Route: 055
     Dates: start: 202010, end: 20201025

REACTIONS (10)
  - Limb injury [Unknown]
  - Diarrhoea [Recovered/Resolved]
  - Arthralgia [Recovered/Resolved]
  - Product dose omission issue [Unknown]
  - Abdominal discomfort [Unknown]
  - Diarrhoea [Unknown]
  - Product packaging difficult to open [Unknown]
  - Walking aid user [Unknown]
  - Neck pain [Recovered/Resolved]
  - Dysgeusia [Recovering/Resolving]

NARRATIVE: CASE EVENT DATE: 202010
